FAERS Safety Report 5208325-7 (Version None)
Quarter: 2007Q1

REPORT INFORMATION
  Report Type: 
  Country: None (occurrence: None)
  Receive Date: 20070110
  Receipt Date: 20070110
  Transmission Date: 20070707
  Serious: Yes (Other)
  Sender: FDA-Public Use
  Company Number: None

PATIENT
  Age: 77 Year
  Sex: Female

DRUGS (2)
  1. FONDOPARINUX [Suspect]
     Indication: KNEE ARTHROPLASTY
     Dosage: 2.5 MG DAILY SQ
     Route: 058
     Dates: start: 20070105, end: 20070108
  2. FONDOPARINUX [Suspect]
     Indication: THROMBOSIS PROPHYLAXIS
     Dosage: 2.5 MG DAILY SQ
     Route: 058
     Dates: start: 20070105, end: 20070108

REACTIONS (3)
  - ANAEMIA [None]
  - BLOODY DISCHARGE [None]
  - THROMBOCYTOPENIA [None]
